FAERS Safety Report 13914401 (Version 1)
Quarter: 2017Q3

REPORT INFORMATION
  Report Type: Spontaneous
  Country: US (occurrence: US)
  Receive Date: 20170828
  Receipt Date: 20170828
  Transmission Date: 20171127
  Serious: No
  Sender: FDA-Public Use
  Company Number: US-ROCHE-1140747

PATIENT
  Sex: Male

DRUGS (8)
  1. NEPHRO-VITE [Concomitant]
  2. NUTROPIN [Suspect]
     Active Substance: SOMATROPIN
     Indication: GROWTH FAILURE
     Route: 058
  3. NUTROPIN [Suspect]
     Active Substance: SOMATROPIN
     Indication: RENAL FAILURE
  4. EPOGEN [Concomitant]
     Active Substance: ERYTHROPOIETIN
  5. IRON [Concomitant]
     Active Substance: IRON
  6. ROCALTROL [Concomitant]
     Active Substance: CALCITRIOL
  7. CACO3 [Concomitant]
  8. ATENOLOL. [Concomitant]
     Active Substance: ATENOLOL

REACTIONS (4)
  - Hypokalaemia [Unknown]
  - Drug ineffective [Unknown]
  - Anaemia [Unknown]
  - Hyperphosphataemia [Unknown]
